FAERS Safety Report 14178787 (Version 1)
Quarter: 2017Q4

REPORT INFORMATION
  Report Type: Spontaneous
  Country: US (occurrence: US)
  Receive Date: 20171110
  Receipt Date: 20171110
  Transmission Date: 20180321
  Serious: No
  Sender: FDA-Public Use
  Company Number: US-PFIZER INC-2017479961

PATIENT
  Age: 88 Year
  Sex: Female
  Weight: 89.36 kg

DRUGS (3)
  1. BOSULIF [Suspect]
     Active Substance: BOSUTINIB MONOHYDRATE
     Indication: CHRONIC MYELOID LEUKAEMIA
     Dosage: 400 MG, UNK
  2. BOSULIF [Suspect]
     Active Substance: BOSUTINIB MONOHYDRATE
     Dosage: 200 MG, 1X/DAY (100MG TABLETS 2 TABLETS ONCE A DAY)
     Route: 048
     Dates: start: 2016
  3. XARELTO [Suspect]
     Active Substance: RIVAROXABAN
     Indication: BLOOD DISORDER
     Dosage: UNK

REACTIONS (1)
  - Dysgeusia [Unknown]

NARRATIVE: CASE EVENT DATE: 2017
